FAERS Safety Report 6803032-9 (Version None)
Quarter: 2010Q2

REPORT INFORMATION
  Report Type: 
  Country: None (occurrence: None)
  Receive Date: 20100628
  Receipt Date: 20100621
  Transmission Date: 20101027
  Serious: Yes (Death, Hospitalization, Other)
  Sender: FDA-Public Use
  Company Number: US-PFIZER INC-2010021646

PATIENT
  Sex: Male

DRUGS (2)
  1. DILANTIN [Interacting]
     Indication: CONVULSION
     Dosage: 2 CAPSULES MORNING AND 3 CAPSULES EVENING
     Route: 048
     Dates: start: 19830816
  2. PHENYTOIN [Suspect]
     Dosage: UNK

REACTIONS (10)
  - ANAEMIA [None]
  - ANTICONVULSANT DRUG LEVEL BELOW THERAPEUTIC [None]
  - CHEST PAIN [None]
  - DYSPNOEA [None]
  - GRAND MAL CONVULSION [None]
  - HALLUCINATION [None]
  - PARTIAL SEIZURES [None]
  - PRODUCT SUBSTITUTION ISSUE [None]
  - STEVENS-JOHNSON SYNDROME [None]
  - UNRESPONSIVE TO STIMULI [None]
